FAERS Safety Report 5077886-3 (Version None)
Quarter: 2006Q3

REPORT INFORMATION
  Report Type: 
  Country: None (occurrence: None)
  Receive Date: 20060720
  Receipt Date: 20050526
  Transmission Date: 20061208
  Serious: Yes (Other)
  Sender: FDA-Public Use
  Company Number: 05USA0124

PATIENT
  Age: 80 Year
  Sex: Male

DRUGS (7)
  1. AGGRASTAT [Suspect]
     Indication: MYOCARDIAL INFARCTION
  2. HEPARIN [Suspect]
     Indication: MYOCARDIAL INFARCTION
  3. ASPIRIN [Suspect]
     Indication: MYOCARDIAL INFARCTION
     Dosage: 325 MG QD
  4. NITROGLYCERIN [Concomitant]
  5. ENALAPRIL MALEATE [Concomitant]
  6. SYNTHROID [Concomitant]
  7. FUROSEMIDE [Concomitant]

REACTIONS (1)
  - THROMBOCYTOPENIA [None]
